FAERS Safety Report 20636780 (Version 1)
Quarter: 2022Q1

REPORT INFORMATION
  Report Type: Spontaneous
  Country: US (occurrence: None)
  Receive Date: 20220324
  Receipt Date: 20220324
  Transmission Date: 20220423
  Serious: Yes (Hospitalization, Disabling, Other)
  Sender: FDA-Public Use
  Company Number: None

PATIENT

DRUGS (1)
  1. SERTRALINE [Suspect]
     Active Substance: SERTRALINE HYDROCHLORIDE
     Indication: Mental disorder
     Dosage: FREQUENCY : DAILY;?
     Route: 048

REACTIONS (19)
  - Product dispensing error [None]
  - Wrong product administered [None]
  - Headache [None]
  - Chest pain [None]
  - Vomiting [None]
  - Nausea [None]
  - Dizziness [None]
  - Syncope [None]
  - Dyskinesia [None]
  - Gait disturbance [None]
  - Back pain [None]
  - Pain [None]
  - Heart rate increased [None]
  - Condition aggravated [None]
  - Mood altered [None]
  - Thirst [None]
  - Urinary tract disorder [None]
  - Gastric disorder [None]
  - General physical health deterioration [None]

NARRATIVE: CASE EVENT DATE: 20210211
